FAERS Safety Report 9361049 (Version 1)
Quarter: 2013Q2

REPORT INFORMATION
  Report Type: Spontaneous
  Country: US (occurrence: US)
  Receive Date: 20130621
  Receipt Date: 20130621
  Transmission Date: 20140414
  Serious: Yes (Other)
  Sender: FDA-Public Use
  Company Number: US-GENZYME-CERZ-1003065

PATIENT
  Age: 19 Month
  Sex: Male

DRUGS (1)
  1. CEREZYME [Suspect]
     Indication: FOETAL EXPOSURE DURING PREGNANCY
     Dosage: UNK
     Route: 065

REACTIONS (2)
  - Foetal heart rate increased [Unknown]
  - Foetal exposure during pregnancy [Unknown]
